FAERS Safety Report 4292218-6 (Version None)
Quarter: 2004Q1

REPORT INFORMATION
  Report Type: 
  Country: None (occurrence: None)
  Receive Date: 20040126
  Receipt Date: 20030926
  Transmission Date: 20041129
  Serious: No
  Sender: FDA-Public Use
  Company Number: USA030946193

PATIENT
  Age: 66 Year
  Sex: Female

DRUGS (11)
  1. FORTEO [Suspect]
     Indication: OSTEOPOROSIS
     Dates: start: 20030826
  2. HUMULIN 70/30 [Suspect]
     Indication: DIABETES MELLITUS
     Dosage: 10 U/IN THE MORNING
     Dates: start: 19980101
  3. HUMULIN 70/30 [Concomitant]
     Indication: DIABETES MELLITUS
     Dosage: 5 U/IN THE EVENING
     Dates: start: 19980101
  4. CALCIUM  PLUS D [Concomitant]
  5. HYDROXYZINE HYDROCHLORIDE [Concomitant]
  6. PREDNISONE [Concomitant]
  7. HYZAAR [Concomitant]
  8. PLAVIX [Concomitant]
  9. CLONIDINE [Concomitant]
  10. NITROGLYCERIN [Concomitant]
  11. CYCLOBENZAPRINE [Concomitant]

REACTIONS (6)
  - BLOOD GLUCOSE INCREASED [None]
  - DRY MOUTH [None]
  - HEADACHE [None]
  - PRURITUS [None]
  - RASH ERYTHEMATOUS [None]
  - SWELLING [None]
